FAERS Safety Report 23897626 (Version 1)
Quarter: 2024Q2

REPORT INFORMATION
  Report Type: Spontaneous
  Country: US (occurrence: US)
  Receive Date: 20240524
  Receipt Date: 20240524
  Transmission Date: 20240716
  Serious: Yes (Other)
  Sender: FDA-Public Use
  Company Number: US-AMGEN-USASP2024101348

PATIENT

DRUGS (1)
  1. RITUXIMAB [Suspect]
     Active Substance: RITUXIMAB
     Indication: Myelin oligodendrocyte glycoprotein antibody-associated disease
     Dosage: 1000 MILLIGRAM, Q6MO
     Route: 065

REACTIONS (2)
  - Myelin oligodendrocyte glycoprotein antibody-associated disease [Unknown]
  - Off label use [Unknown]
